FAERS Safety Report 8063339-7 (Version None)
Quarter: 2011Q4

REPORT INFORMATION
  Report Type: 
  Country: None (occurrence: None)
  Receive Date: 20111220
  Receipt Date: 20110705
  Transmission Date: 20120403
  Serious: Yes (Other)
  Sender: FDA-Public Use
  Company Number: PHHY2011US60230

PATIENT
  Age: 71 Year
  Sex: Male

DRUGS (8)
  1. MAGNESIUM (MAGNESIUM) [Concomitant]
  2. CRESTOR [Concomitant]
  3. PREDNISOLONE [Concomitant]
  4. ASPIRIN [Concomitant]
  5. MYFORTIC [Suspect]
     Indication: HEART TRANSPLANT
     Dosage: 360 MG
  6. PROGRAF [Concomitant]
  7. NORVASC [Concomitant]
  8. INSULIN [Concomitant]

REACTIONS (1)
  - DIABETES MELLITUS [None]
